FAERS Safety Report 20100197 (Version 1)
Quarter: 2021Q4

REPORT INFORMATION
  Report Type: Spontaneous
  Country: US (occurrence: None)
  Receive Date: 20211123
  Receipt Date: 20211123
  Transmission Date: 20220303
  Serious: Yes (Other)
  Sender: FDA-Public Use
  Company Number: US-Hikma Pharmaceuticals USA Inc.-US-H14001-21-04939

PATIENT
  Age: 79 Year
  Sex: Male

DRUGS (9)
  1. METHOTREXATE [Suspect]
     Active Substance: METHOTREXATE
     Indication: Anaemia macrocytic
     Route: 065
     Dates: start: 20190725, end: 20190902
  2. METHOTREXATE [Suspect]
     Active Substance: METHOTREXATE
     Indication: Large granular lymphocytosis
     Route: 065
     Dates: start: 20200513, end: 20200819
  3. TACROLIMUS [Concomitant]
     Active Substance: TACROLIMUS
     Indication: Anaemia macrocytic
     Route: 065
     Dates: start: 20200228, end: 20200819
  4. TACROLIMUS [Concomitant]
     Active Substance: TACROLIMUS
     Indication: Large granular lymphocytosis
  5. EPOETIN ALFA [Concomitant]
     Active Substance: ERYTHROPOIETIN
     Indication: Anaemia macrocytic
     Route: 065
     Dates: start: 20200215
  6. PREDNISONE [Concomitant]
     Active Substance: PREDNISONE
     Indication: Anaemia macrocytic
     Route: 065
     Dates: start: 20190913, end: 20191110
  7. PREDNISONE [Concomitant]
     Active Substance: PREDNISONE
     Indication: Large granular lymphocytosis
     Dosage: 40 MG DAILY TAPERED OVER 14 DAYS
     Route: 065
  8. CYCLOSPORINE [Concomitant]
     Active Substance: CYCLOSPORINE
     Indication: Anaemia macrocytic
     Dosage: 2 MG/KG DAILY IN DIVIDED DOSES
     Route: 065
     Dates: start: 20191115, end: 20200220
  9. CYCLOSPORINE [Concomitant]
     Active Substance: CYCLOSPORINE
     Indication: Large granular lymphocytosis

REACTIONS (4)
  - Packed red blood cell transfusion [Recovering/Resolving]
  - Fatigue [Recovering/Resolving]
  - Condition aggravated [Recovering/Resolving]
  - Drug ineffective [Unknown]
